FAERS Safety Report 21622178 (Version 2)
Quarter: 2024Q2

REPORT INFORMATION
  Report Type: Report from Study
  Country: US (occurrence: US)
  Receive Date: 20221121
  Receipt Date: 20240401
  Transmission Date: 20240715
  Serious: No
  Sender: FDA-Public Use
  Company Number: US-ABBVIE-22K-163-4485572-00

PATIENT
  Age: 81 Year
  Sex: Male

DRUGS (3)
  1. VENCLEXTA [Suspect]
     Active Substance: VENETOCLAX
     Indication: Acute myeloid leukaemia
     Route: 048
  2. VENCLEXTA [Suspect]
     Active Substance: VENETOCLAX
     Indication: Acute myeloid leukaemia
     Route: 048
  3. MODERNA COVID-19 VACCINE [Concomitant]
     Active Substance: ELASOMERAN
     Indication: COVID-19 immunisation
     Dosage: ONE IN ONCE ?FIRST DOSE
     Route: 030
     Dates: start: 202101, end: 202101

REACTIONS (13)
  - Choking [Not Recovered/Not Resolved]
  - Flatulence [Not Recovered/Not Resolved]
  - Blister infected [Not Recovered/Not Resolved]
  - Chromaturia [Not Recovered/Not Resolved]
  - Back pain [Not Recovered/Not Resolved]
  - Wound haemorrhage [Recovering/Resolving]
  - Spinal pain [Not Recovered/Not Resolved]
  - Constipation [Not Recovered/Not Resolved]
  - Fall [Not Recovered/Not Resolved]
  - Infected skin ulcer [Recovering/Resolving]
  - Localised infection [Not Recovered/Not Resolved]
  - Urinary tract infection [Recovered/Resolved]
  - Parkinson^s disease [Unknown]

NARRATIVE: CASE EVENT DATE: 20220806
